FAERS Safety Report 4984036-8 (Version None)
Quarter: 2006Q1

REPORT INFORMATION
  Report Type: 
  Country: None (occurrence: None)
  Receive Date: 20060301
  Receipt Date: 20051019
  Transmission Date: 20060701
  Serious: No
  Sender: FDA-Public Use
  Company Number: S05-USA-04709-01

PATIENT
  Age: 89 Year
  Sex: Female

DRUGS (7)
  1. NAMENDA [Suspect]
     Indication: DEMENTIA ALZHEIMER'S TYPE
     Dosage: 5 MG QD PO
     Route: 048
     Dates: start: 20051014
  2. ARICEPT [Concomitant]
  3. HYDROCHLOROTHIAZIDE [Concomitant]
  4. ALLOPURINOL [Concomitant]
  5. POTASSIUM [Concomitant]
  6. ZOCOR [Concomitant]
  7. ACTONEL [Concomitant]

REACTIONS (2)
  - CRYING [None]
  - DEPRESSION [None]
